FAERS Safety Report 19066348 (Version 1)
Quarter: 2021Q1

REPORT INFORMATION
  Report Type: Spontaneous
  Country: DE (occurrence: DE)
  Receive Date: 20210328
  Receipt Date: 20210328
  Transmission Date: 20210420
  Serious: Yes (Hospitalization)
  Sender: FDA-Public Use
  Company Number: DE-TEVA-2021-DE-1894472

PATIENT
  Age: 69 Year
  Sex: Male

DRUGS (9)
  1. CEFUROXIM [Suspect]
     Active Substance: CEFUROXIME
     Dosage: ALREADY DISCONTINUED FOR 7 DAYS
  2. DILTIAZEM. [Concomitant]
     Active Substance: DILTIAZEM
     Dosage: 90 MILLIGRAM DAILY; 1?0?0?0
  3. SPIRONOLACTON [Suspect]
     Active Substance: SPIRONOLACTONE
     Dosage: 100 MILLIGRAM DAILY; 1?1?0?0
  4. ATACAND HCT 32MG/25MG [Concomitant]
     Dosage: 1 DOSAGE FORMS DAILY; 32|25 MG, 1?0?0?0
  5. SALBUTAMOL [Concomitant]
     Active Substance: ALBUTEROL
     Dosage: METERED DOSE AEROSOL
     Route: 055
  6. JODID [Concomitant]
     Active Substance: IODINE
     Dosage: 1 DOSAGE FORMS DAILY; 1?0?0?0
  7. ALLOPURINOL. [Concomitant]
     Active Substance: ALLOPURINOL
     Dosage: 100 MG, PAUSED
  8. MUCOFALK APFEL [Concomitant]
     Dosage: 3 DOSAGE FORMS DAILY; 1?1?1?0
  9. ELIQUIS [Concomitant]
     Active Substance: APIXABAN
     Dosage: 10 MILLIGRAM DAILY; 1?0?1?0

REACTIONS (2)
  - Ascites [Unknown]
  - Renal failure [Unknown]
